FAERS Safety Report 20225852 (Version 2)
Quarter: 2024Q3

REPORT INFORMATION
  Report Type: Spontaneous
  Country: US (occurrence: US)
  Receive Date: 20211224
  Receipt Date: 20240917
  Transmission Date: 20241017
  Serious: Yes (Hospitalization)
  Sender: SANOFI AVENTIS
  Company Number: US-SA-SAC20211223000344

PATIENT
  Age: 46 Year
  Sex: Female
  Weight: 77 kg

DRUGS (15)
  1. DUPIXENT [Suspect]
     Active Substance: DUPILUMAB
     Indication: Asthma
     Dosage: 300 MG, QOW
     Route: 058
     Dates: start: 20210527
  2. LOVASTATIN [Concomitant]
     Active Substance: LOVASTATIN
  3. BYDUREON [Concomitant]
     Active Substance: EXENATIDE
  4. INSULIN LISPRO [Concomitant]
     Active Substance: INSULIN LISPRO
     Dosage: 75-25 75-25/ML VIAL
  5. IPRATROPIUM BROMIDE [Concomitant]
     Active Substance: IPRATROPIUM BROMIDE\IPRATROPIUM BROMIDE ANHYDROUS
  6. LEVALBUTEROL [Concomitant]
     Active Substance: LEVALBUTEROL
  7. COMBIVENT RESPIMAT [Concomitant]
     Active Substance: ALBUTEROL SULFATE\IPRATROPIUM BROMIDE
  8. LEVOTHYROXINE SODIUM [Concomitant]
     Active Substance: LEVOTHYROXINE SODIUM
  9. METHYLPREDNISOLONE [Concomitant]
     Active Substance: METHYLPREDNISOLONE
  10. ZAFIRLUKAST [Concomitant]
     Active Substance: ZAFIRLUKAST
  11. LEVOCETIRIZINE DIHYDROCHLORIDE [Concomitant]
     Active Substance: LEVOCETIRIZINE DIHYDROCHLORIDE
     Dosage: 10MG
  12. JARDIANCE [Concomitant]
     Active Substance: EMPAGLIFLOZIN
  13. METFORMIN HYDROCHLORIDE [Concomitant]
     Active Substance: METFORMIN HYDROCHLORIDE
  14. HYDROCORTISONE [Concomitant]
     Active Substance: HYDROCORTISONE\HYDROCORTISONE ACETATE
  15. FENOFIBRATE [Concomitant]
     Active Substance: FENOFIBRATE

REACTIONS (5)
  - Fall [Unknown]
  - Upper limb fracture [Unknown]
  - Hospitalisation [Unknown]
  - COVID-19 [Unknown]
  - Asthma [Unknown]

NARRATIVE: CASE EVENT DATE: 20211101
